FAERS Safety Report 19907930 (Version 6)
Quarter: 2022Q2

REPORT INFORMATION
  Report Type: Report from Study
  Country: CO (occurrence: CO)
  Receive Date: 20211001
  Receipt Date: 20220609
  Transmission Date: 20220721
  Serious: Yes (Other)
  Sender: FDA-Public Use
  Company Number: CO-TAKEDA-CO202016053

PATIENT
  Age: 64 Year
  Sex: Male
  Weight: 85 kg

DRUGS (8)
  1. ICATIBANT [Suspect]
     Active Substance: ICATIBANT ACETATE
     Indication: Hereditary angioedema
     Dosage: 30 MILLIGRAM PER MILLILITRE, Q6HR
     Route: 058
     Dates: start: 20180810
  2. ICATIBANT [Suspect]
     Active Substance: ICATIBANT ACETATE
     Indication: Hereditary angioedema
     Dosage: 30 MILLIGRAM PER MILLILITRE, Q6HR
     Route: 058
     Dates: start: 20180810
  3. ICATIBANT [Suspect]
     Active Substance: ICATIBANT ACETATE
     Dosage: UNK
     Route: 058
     Dates: start: 20200810
  4. ICATIBANT [Suspect]
     Active Substance: ICATIBANT ACETATE
     Dosage: UNK
     Route: 058
     Dates: start: 20200810
  5. ICATIBANT [Suspect]
     Active Substance: ICATIBANT ACETATE
     Dosage: 30 MILLIGRAM, Q8HR
     Route: 058
  6. ICATIBANT [Suspect]
     Active Substance: ICATIBANT ACETATE
     Dosage: 30 MILLIGRAM, Q8HR
     Route: 058
  7. ICATIBANT [Suspect]
     Active Substance: ICATIBANT ACETATE
     Dosage: UNK, Q6HR
     Route: 058
     Dates: start: 20180810
  8. ICATIBANT [Suspect]
     Active Substance: ICATIBANT ACETATE
     Dosage: UNK, Q6HR
     Route: 058
     Dates: start: 20180810

REACTIONS (6)
  - Diabetes mellitus [Unknown]
  - Hypertension [Unknown]
  - Body height increased [Unknown]
  - Weight increased [Unknown]
  - Weight decreased [Unknown]
  - Off label use [Unknown]

NARRATIVE: CASE EVENT DATE: 20210924
